FAERS Safety Report 7755075-9 (Version None)
Quarter: 2011Q3

REPORT INFORMATION
  Report Type: 
  Country: None (occurrence: None)
  Receive Date: 20110916
  Receipt Date: 20110906
  Transmission Date: 20111222
  Serious: Yes (Hospitalization, Other)
  Sender: FDA-Public Use
  Company Number: US-ELI_LILLY_AND_COMPANY-US201102004401

PATIENT
  Sex: Female

DRUGS (3)
  1. FORTEO [Suspect]
     Dosage: 20 UG, QD
     Route: 058
  2. FORTEO [Suspect]
     Indication: OSTEOPOROSIS
     Dosage: 20 UG, QD
     Route: 058
     Dates: start: 20101130
  3. FORTEO [Suspect]
     Dosage: 20 UG, QD
     Route: 058

REACTIONS (9)
  - AORTIC ANEURYSM [None]
  - INFLUENZA [None]
  - ASTHMA [None]
  - PNEUMONIA [None]
  - VIRAL UPPER RESPIRATORY TRACT INFECTION [None]
  - ARTERIAL GRAFT [None]
  - DEHYDRATION [None]
  - BACK DISORDER [None]
  - HYPOAESTHESIA [None]
